FAERS Safety Report 7577717-3 (Version None)
Quarter: 2011Q2

REPORT INFORMATION
  Report Type: 
  Country: None (occurrence: None)
  Receive Date: 20110628
  Receipt Date: 20110620
  Transmission Date: 20111010
  Serious: Yes (Other)
  Sender: FDA-Public Use
  Company Number: US-PFIZER INC-2011137971

PATIENT
  Sex: Male

DRUGS (1)
  1. SUTENT [Suspect]
     Indication: METASTATIC RENAL CELL CARCINOMA
     Dosage: UNK
     Route: 048

REACTIONS (9)
  - HAEMATOSPERMIA [None]
  - CYST [None]
  - RECTAL HAEMORRHAGE [None]
  - DIARRHOEA [None]
  - ABDOMINAL PAIN UPPER [None]
  - NECK PAIN [None]
  - EPISTAXIS [None]
  - HAEMATOCHEZIA [None]
  - PAIN [None]
